FAERS Safety Report 20156872 (Version 1)
Quarter: 2021Q4

REPORT INFORMATION
  Report Type: Spontaneous
  Country: CN (occurrence: None)
  Receive Date: 20211207
  Receipt Date: 20211207
  Transmission Date: 20220303
  Serious: Yes (Other)
  Sender: FDA-Public Use
  Company Number: 2021A824432

PATIENT
  Age: 66 Year
  Sex: Male
  Weight: 62 kg

DRUGS (2)
  1. IMFINZI [Suspect]
     Active Substance: DURVALUMAB
     Indication: Non-small cell lung cancer stage III
     Dosage: 620 MG / CYCLE
     Route: 042
     Dates: start: 20210222, end: 20210315
  2. CATEQUENTINIB [Concomitant]
     Active Substance: CATEQUENTINIB
     Indication: Non-small cell lung cancer
     Dosage: ONE TABLET PER DAY
     Route: 048

REACTIONS (2)
  - Cardiac disorder [Recovering/Resolving]
  - Pneumonitis [Recovering/Resolving]
